FAERS Safety Report 6242905-5 (Version None)
Quarter: 2009Q2

REPORT INFORMATION
  Report Type: 
  Country: None (occurrence: None)
  Receive Date: 20090624
  Receipt Date: 20090619
  Transmission Date: 20091009
  Serious: Yes (Other)
  Sender: FDA-Public Use
  Company Number: CA-BAYER-200922601NA

PATIENT
  Age: 38 Year
  Sex: Female

DRUGS (3)
  1. MIRENA [Suspect]
     Indication: DRUG USE FOR UNKNOWN INDICATION
     Route: 015
     Dates: end: 20080601
  2. MIRENA [Suspect]
     Route: 015
     Dates: start: 20080601
  3. EFFEXOR [Concomitant]
     Indication: DRUG USE FOR UNKNOWN INDICATION
     Dates: start: 20080601

REACTIONS (6)
  - BREAST PAIN [None]
  - BRUXISM [None]
  - HEADACHE [None]
  - PREMENSTRUAL SYNDROME [None]
  - TOOTH FRACTURE [None]
  - VAGINAL HAEMORRHAGE [None]
